FAERS Safety Report 9605094 (Version 2)
Quarter: 2013Q4

REPORT INFORMATION
  Report Type: Report from Study
  Country: IT (occurrence: IT)
  Receive Date: 20131008
  Receipt Date: 20131017
  Transmission Date: 20140711
  Serious: Yes (Other)
  Sender: FDA-Public Use
  Company Number: IT-GILEAD-2013-0084756

PATIENT
  Age: 8 Year
  Sex: Female

DRUGS (3)
  1. TENOFOVIR DISOPROXIL FUMARATE [Suspect]
     Indication: HIV INFECTION
     Dosage: 150 MG, QD
     Dates: start: 200809, end: 20120619
  2. EFAVIRENZ [Suspect]
     Indication: HIV INFECTION
     Dosage: 150 MG, QD
     Dates: start: 200809
  3. LAMIVUDINE [Suspect]
     Indication: HIV INFECTION
     Dosage: 75 MG, BID
     Dates: start: 200809

REACTIONS (3)
  - Drug level increased [Unknown]
  - Genetic polymorphism [Unknown]
  - Fanconi syndrome acquired [Recovering/Resolving]
